FAERS Safety Report 6732071-1 (Version None)
Quarter: 2010Q2

REPORT INFORMATION
  Report Type: 
  Country: None (occurrence: None)
  Receive Date: 20100519
  Receipt Date: 20100519
  Transmission Date: 20101027
  Serious: Yes (Other)
  Sender: FDA-Public Use
  Company Number: None

PATIENT
  Age: 4 Year
  Sex: Female
  Weight: 17.7 kg

DRUGS (2)
  1. CHILDREN'S MOTRIN [Suspect]
     Indication: PYREXIA
     Dosage: 1 TSP EVERY 6-8 HOURS PRN
     Dates: start: 20100307, end: 20100313
  2. ZYRTEC [Suspect]
     Indication: HYPERSENSITIVITY
     Dosage: 1/2 TSP EVERY NIGHT
     Dates: start: 20070101, end: 20100410

REACTIONS (5)
  - COUGH [None]
  - MALAISE [None]
  - PRODUCT QUALITY ISSUE [None]
  - PYREXIA [None]
  - TIC [None]
